FAERS Safety Report 13952399 (Version 1)
Quarter: 2017Q3

REPORT INFORMATION
  Report Type: Spontaneous
  Country: US (occurrence: US)
  Receive Date: 20170911
  Receipt Date: 20170911
  Transmission Date: 20171128
  Serious: No
  Sender: FDA-Public Use
  Company Number: US-TEVA-725819ACC

PATIENT
  Age: 52 Year
  Sex: Female
  Weight: 73.55 kg

DRUGS (3)
  1. FENTANYL. [Suspect]
     Active Substance: FENTANYL
     Indication: BACK PAIN
  2. FENTANYL. [Suspect]
     Active Substance: FENTANYL
     Indication: PAIN
  3. FENTANYL. [Suspect]
     Active Substance: FENTANYL
     Indication: NECK PAIN
     Route: 062
     Dates: start: 20161011

REACTIONS (3)
  - Hyperhidrosis [Unknown]
  - Drug effect decreased [Unknown]
  - Crying [Unknown]

NARRATIVE: CASE EVENT DATE: 201610
